FAERS Safety Report 4836528-X (Version None)
Quarter: 2005Q4

REPORT INFORMATION
  Report Type: 
  Country: None (occurrence: None)
  Receive Date: 20051118
  Receipt Date: 20051104
  Transmission Date: 20060501
  Serious: Yes (Hospitalization)
  Sender: FDA-Public Use
  Company Number: 440028E05USA

PATIENT
  Age: 47 Year
  Sex: Male

DRUGS (1)
  1. SEROSTIM [Suspect]
     Dosage: 4 MG (4 MG, 1 IN 1 DAYS)
     Route: 058
     Dates: start: 20050526, end: 20050823

REACTIONS (3)
  - ABDOMINAL DISTENSION [None]
  - DIVERTICULITIS [None]
  - PYREXIA [None]
